FAERS Safety Report 6926866-9 (Version None)
Quarter: 2010Q3

REPORT INFORMATION
  Report Type: 
  Country: None (occurrence: None)
  Receive Date: 20100816
  Receipt Date: 20100630
  Transmission Date: 20110219
  Serious: No
  Sender: FDA-Public Use
  Company Number: US-ABBOTT-10P-163-0654610-00

PATIENT
  Sex: Male

DRUGS (2)
  1. SIMCOR [Suspect]
     Indication: HYPERLIPIDAEMIA
     Dosage: 500/20
     Dates: start: 20080501, end: 20080501
  2. SIMCOR [Suspect]
     Dosage: 500/20, 2 TABS
     Dates: start: 20080501, end: 20080501

REACTIONS (1)
  - FLUSHING [None]
